FAERS Safety Report 4740345-9 (Version None)
Quarter: 2005Q3

REPORT INFORMATION
  Report Type: 
  Country: None (occurrence: None)
  Receive Date: 20050810
  Receipt Date: 20030617
  Transmission Date: 20060218
  Serious: No
  Sender: FDA-Public Use
  Company Number: US-GLAXOSMITHKLINE-A0412947A

PATIENT
  Age: 75 Year
  Sex: Female

DRUGS (10)
  1. PAXIL [Suspect]
     Dosage: 10MG PER DAY
     Route: 048
     Dates: start: 20010101, end: 20030612
  2. PAXIL CR [Suspect]
     Indication: DEPRESSION
     Dosage: 12.5MG PER DAY
     Route: 048
     Dates: start: 20030612
  3. ASPIRIN [Concomitant]
  4. MULTI-VITAMIN [Concomitant]
  5. ASCORBIC ACID [Concomitant]
  6. FOLIC ACID [Concomitant]
  7. TYLENOL PM [Concomitant]
  8. CALCIUM GLUCONATE [Concomitant]
  9. AMBIEN [Concomitant]
  10. CELEBREX [Concomitant]

REACTIONS (3)
  - DIZZINESS [None]
  - INSOMNIA [None]
  - SENSATION OF HEAVINESS [None]
